FAERS Safety Report 22197185 (Version 2)
Quarter: 2023Q2

REPORT INFORMATION
  Report Type: Spontaneous
  Country: DE (occurrence: DE)
  Receive Date: 20230411
  Receipt Date: 20230510
  Transmission Date: 20230721
  Serious: Yes (Hospitalization, Other)
  Sender: FDA-Public Use
  Company Number: DE-CELLTRION INC.-2023DE007230

PATIENT

DRUGS (2)
  1. RITUXIMAB [Suspect]
     Active Substance: RITUXIMAB
     Indication: Acute disseminated encephalomyelitis
     Dosage: 1000 MG, SINGLE
  2. RITUXIMAB [Suspect]
     Active Substance: RITUXIMAB
     Indication: B-cell depletion therapy

REACTIONS (3)
  - Sepsis [Recovered/Resolved]
  - Orchitis [Recovered/Resolved]
  - Off label use [Unknown]
